FAERS Safety Report 4947177-7 (Version None)
Quarter: 2006Q1

REPORT INFORMATION
  Report Type: 
  Country: None (occurrence: None)
  Receive Date: 20060313
  Receipt Date: 20060227
  Transmission Date: 20060701
  Serious: Yes (Other)
  Sender: FDA-Public Use
  Company Number: 2006030452

PATIENT
  Sex: Female

DRUGS (1)
  1. DETROL [Suspect]
     Indication: BLADDER DISORDER

REACTIONS (1)
  - BLADDER OPERATION [None]
